FAERS Safety Report 21618487 (Version 2)
Quarter: 2022Q4

REPORT INFORMATION
  Report Type: Spontaneous
  Country: GB (occurrence: GB)
  Receive Date: 20221119
  Receipt Date: 20221207
  Transmission Date: 20230113
  Serious: Yes (Other)
  Sender: FDA-Public Use
  Company Number: GB-BAYER-2022A153143

PATIENT

DRUGS (1)
  1. EYLEA [Suspect]
     Active Substance: AFLIBERCEPT
     Indication: Product used for unknown indication
     Dosage: LEFT EYE; SOLUTION FOR INJECTION IN PRE-FILLED SYRINGE; STRENGTH: 40MG/ML
     Route: 031

REACTIONS (1)
  - Syringe issue [Unknown]
